FAERS Safety Report 7597448-3 (Version None)
Quarter: 2011Q3

REPORT INFORMATION
  Report Type: 
  Country: None (occurrence: None)
  Receive Date: 20110708
  Receipt Date: 20110628
  Transmission Date: 20111222
  Serious: Yes (Hospitalization, Other)
  Sender: FDA-Public Use
  Company Number: PHHY2010FR89652

PATIENT
  Sex: Female

DRUGS (12)
  1. METHOTREXATE [Suspect]
     Dosage: 15 MG, UNK
     Dates: start: 20100101, end: 20100526
  2. FOSAVANCE [Concomitant]
     Dosage: UNK
  3. PROPOFAN [Concomitant]
     Dosage: UNK
  4. VOLTAREN [Suspect]
     Dosage: 50 AND 75 MG DAILY
     Route: 048
     Dates: start: 20000101
  5. METHOTREXATE [Suspect]
     Dosage: 17.5 MG, UNK
     Dates: start: 20100526, end: 20101001
  6. METHOTREXATE [Suspect]
     Dosage: 7.5 MG, QW
  7. PREDNISONE [Concomitant]
     Dosage: 7 MG, DAILY
     Dates: start: 20100101
  8. PREDNISONE [Concomitant]
     Dosage: 8 MG, DAILY
  9. CORTICOSTEROIDS [Concomitant]
     Dosage: 12 MG PER DAY
  10. VOLTAREN [Suspect]
     Dosage: 25 MG, BID
     Route: 048
     Dates: start: 20100101, end: 20101001
  11. METHOTREXATE [Suspect]
     Indication: RHEUMATOID ARTHRITIS
     Dosage: 12.5 MG, UNK
     Dates: start: 19870101, end: 20100101
  12. FOLIC ACID [Concomitant]
     Dosage: UNK

REACTIONS (11)
  - PYELONEPHRITIS ACUTE [None]
  - HEPATITIS [None]
  - FLANK PAIN [None]
  - GAMMA-GLUTAMYLTRANSFERASE INCREASED [None]
  - ASPARTATE AMINOTRANSFERASE INCREASED [None]
  - CYTOLYTIC HEPATITIS [None]
  - CHOLESTASIS [None]
  - HEPATOMEGALY [None]
  - HEPATOTOXICITY [None]
  - ALANINE AMINOTRANSFERASE INCREASED [None]
  - BLOOD ALKALINE PHOSPHATASE INCREASED [None]
